FAERS Safety Report 5779301-0 (Version None)
Quarter: 2008Q2

REPORT INFORMATION
  Report Type: 
  Country: None (occurrence: None)
  Receive Date: 20080619
  Receipt Date: 20080609
  Transmission Date: 20081010
  Serious: Yes (Other)
  Sender: FDA-Public Use
  Company Number: GB-ABBOTT-08P-167-0456580-00

PATIENT
  Sex: Male

DRUGS (1)
  1. HUMIRA [Suspect]
     Indication: CROHN'S DISEASE
     Dosage: ON MAINTAINANCE THERAPY

REACTIONS (5)
  - CROHN'S DISEASE [None]
  - DRUG INEFFECTIVE [None]
  - HEPATITIS B TEST NEGATIVE [None]
  - INJECTION SITE REACTION [None]
  - MEDICATION ERROR [None]
